FAERS Safety Report 7086727-4 (Version None)
Quarter: 2010Q4

REPORT INFORMATION
  Report Type: 
  Country: None (occurrence: None)
  Receive Date: 20101105
  Receipt Date: 20101027
  Transmission Date: 20110411
  Serious: Yes (Hospitalization)
  Sender: FDA-Public Use
  Company Number: GB-ELI_LILLY_AND_COMPANY-GB201010006181

PATIENT
  Age: 68 Year
  Sex: Male
  Weight: 88 kg

DRUGS (10)
  1. BYETTA [Suspect]
     Indication: DIABETES MELLITUS
     Dosage: 5 UG, 2/D
     Route: 058
     Dates: start: 20100528, end: 20100614
  2. ASPIRIN [Concomitant]
  3. CARVEDILOL [Concomitant]
  4. FUROSEMIDE [Concomitant]
  5. GLIMEPIRIDE [Concomitant]
  6. LANSOPRAZOLE [Concomitant]
  7. METFORMIN HCL [Concomitant]
  8. NOVOMIX                            /01475801/ [Concomitant]
  9. PERINDOPRIL [Concomitant]
  10. SPIRONOLACTONE [Concomitant]

REACTIONS (9)
  - BRONCHOSPASM [None]
  - CHEST DISCOMFORT [None]
  - COUGH [None]
  - DYSPNOEA [None]
  - EOSINOPHILIA [None]
  - HYPOXIA [None]
  - OFF LABEL USE [None]
  - PEAK EXPIRATORY FLOW RATE DECREASED [None]
  - WHEEZING [None]
